FAERS Safety Report 5404567-6 (Version None)
Quarter: 2007Q3

REPORT INFORMATION
  Report Type: 
  Country: None (occurrence: None)
  Receive Date: 20070713
  Receipt Date: 20070226
  Transmission Date: 20080115
  Serious: Yes (Hospitalization, Other)
  Sender: FDA-Public Use
  Company Number: US-JNJFOC-20060600587

PATIENT
  Age: 32 Year
  Sex: Female
  Weight: 63.05 kg

DRUGS (1)
  1. ORTHO EVRA [Suspect]
     Indication: UTERINE LEIOMYOMA
     Dates: start: 20040401, end: 20040525

REACTIONS (1)
  - DEEP VEIN THROMBOSIS [None]
